FAERS Safety Report 16697596 (Version 5)
Quarter: 2021Q4

REPORT INFORMATION
  Report Type: Report from Study
  Country: JP (occurrence: JP)
  Receive Date: 20190813
  Receipt Date: 20211216
  Transmission Date: 20220303
  Serious: Yes (Death, Other)
  Sender: FDA-Public Use
  Company Number: JP-ASTELLAS-2019JP017180

PATIENT
  Age: 76 Year
  Sex: Male
  Weight: 54 kg

DRUGS (34)
  1. GILTERITINIB [Interacting]
     Active Substance: GILTERITINIB
     Indication: Acute myeloid leukaemia refractory
     Route: 048
     Dates: start: 20190621, end: 20190629
  2. GILTERITINIB [Interacting]
     Active Substance: GILTERITINIB
     Route: 048
     Dates: start: 20190702, end: 20190705
  3. GILTERITINIB [Interacting]
     Active Substance: GILTERITINIB
     Route: 048
     Dates: start: 20190706, end: 20190727
  4. GILTERITINIB [Interacting]
     Active Substance: GILTERITINIB
     Route: 048
     Dates: start: 20190731, end: 20190801
  5. HYDREA [Suspect]
     Active Substance: HYDROXYUREA
     Indication: Acute myeloid leukaemia
     Dosage: 1000 MG/DAY, UNKNOWN FREQ.
     Route: 048
     Dates: start: 20190614, end: 20190627
  6. ITRACONAZOLE [Interacting]
     Active Substance: ITRACONAZOLE
     Indication: Prophylaxis
     Dosage: 20 ML/DAY, UNKNOWN FREQ.
     Route: 048
     Dates: start: 20190628, end: 20190705
  7. JANUVIA [Concomitant]
     Active Substance: SITAGLIPTIN PHOSPHATE
     Indication: Type 2 diabetes mellitus
     Dosage: 25 MG/DAY, UNKNOWN FREQ.
     Route: 048
     Dates: end: 20190804
  8. FEBUXOSTAT [Concomitant]
     Active Substance: FEBUXOSTAT
     Indication: Hyperuricaemia
     Dosage: 10 MG/DAY, UNKNOWN FREQ.
     Route: 048
     Dates: end: 20190804
  9. LANSOPRAZOLE [Concomitant]
     Active Substance: LANSOPRAZOLE
     Indication: Gastrooesophageal reflux disease
     Dosage: 15 MG/DAY, UNKNOWN FREQ.
     Route: 048
     Dates: end: 20190804
  10. POTASSIUM CHLORIDE [Concomitant]
     Active Substance: POTASSIUM CHLORIDE
     Indication: Hypokalaemia
     Dosage: 2400 MG/DAY, UNKNOWN FREQ.
     Route: 048
     Dates: end: 20190801
  11. SPIRONOLACTONE [Concomitant]
     Active Substance: SPIRONOLACTONE
     Indication: Oedema peripheral
     Dosage: 50 MG/DAY, UNKNOWN FREQ.
     Route: 048
     Dates: end: 20190801
  12. SULFAMETHOXAZOLE\TRIMETHOPRIM [Concomitant]
     Active Substance: SULFAMETHOXAZOLE\TRIMETHOPRIM
     Indication: Prophylaxis
     Dosage: 0.5 DF/DAY, UNKNOWN FREQ.
     Route: 048
     Dates: end: 20190804
  13. LEVOTHYROXINE SODIUM [Concomitant]
     Active Substance: LEVOTHYROXINE SODIUM
     Indication: Hypothyroidism
     Dosage: 37.5 MG/DAY, UNKNOWN FREQ.
     Route: 048
     Dates: end: 20190804
  14. MAGNESIUM [Concomitant]
     Active Substance: MAGNESIUM
     Indication: Constipation
     Dosage: 660 MG/DAY, UNKNOWN FREQ.
     Route: 048
     Dates: end: 20190804
  15. LEVOFLOXACIN HEMIHYDRATE [Concomitant]
     Active Substance: LEVOFLOXACIN
     Indication: Prophylaxis
     Dosage: 500 MG/DAY, UNKNOWN FREQ.
     Route: 048
     Dates: start: 20190628, end: 20190628
  16. LEVOFLOXACIN HEMIHYDRATE [Concomitant]
     Active Substance: LEVOFLOXACIN
     Dosage: 250 MG/DAY, UNKNOWN FREQ.
     Route: 048
     Dates: start: 20190629, end: 20190704
  17. FILGRASTIM RECOMBINANT [Concomitant]
     Indication: Neutropenia
     Dosage: 300 ?G/DAY, UNKNOWN FREQ.
     Route: 058
     Dates: start: 20190629, end: 20190630
  18. FILGRASTIM RECOMBINANT [Concomitant]
     Dosage: 150 ?G/DAY, UNKNOWN FREQ.
     Route: 058
     Dates: start: 20190715, end: 20190717
  19. FILGRASTIM RECOMBINANT [Concomitant]
     Dosage: 150 ?G/DAY, UNKNOWN FREQ.
     Route: 058
     Dates: start: 20190720, end: 20190720
  20. THROMBOMODULIN ALFA [Concomitant]
     Active Substance: THROMBOMODULIN ALFA
     Indication: Disseminated intravascular coagulation
     Dosage: 7020 U/DAY, UNKNOWN FREQ.
     Route: 065
     Dates: start: 20190701, end: 20190707
  21. THROMBOMODULIN ALFA [Concomitant]
     Active Substance: THROMBOMODULIN ALFA
     Dosage: 7020 U/DAY, UNKNOWN FREQ.
     Route: 065
     Dates: start: 20190715, end: 20190724
  22. ACYCLOVIR [Concomitant]
     Active Substance: ACYCLOVIR
     Indication: Prophylaxis
     Dosage: 200 MG/DAY, UNKNOWN FREQ.
     Route: 048
     Dates: start: 20190706, end: 20190804
  23. PREDONINE [Concomitant]
     Active Substance: PREDNISOLONE
     Indication: Plasma cell myeloma
     Route: 048
     Dates: start: 20190706, end: 20190804
  24. TRANEXAMIC ACID [Concomitant]
     Active Substance: TRANEXAMIC ACID
     Indication: Epistaxis
     Dosage: UNK UNK, UNKNOWN FREQ.
     Route: 065
     Dates: start: 20190712
  25. ZOSYN [Concomitant]
     Active Substance: PIPERACILLIN SODIUM\TAZOBACTAM SODIUM
     Indication: Febrile neutropenia
     Route: 065
     Dates: start: 20190714, end: 20190725
  26. REVLIMID [Concomitant]
     Active Substance: LENALIDOMIDE
     Indication: Plasma cell myeloma
     Route: 048
     Dates: start: 20190717, end: 20190731
  27. ORGARAN [Concomitant]
     Active Substance: DANAPAROID SODIUM
     Indication: Disseminated intravascular coagulation
     Dosage: 1250 U/DAY UNKNOWN FREQ.
     Route: 065
     Dates: start: 20190728, end: 20190731
  28. DARZALEX [Concomitant]
     Active Substance: DARATUMUMAB
     Indication: Plasma cell myeloma
     Dosage: 870 MG/DAY, UNKNOWN FREQ.
     Route: 065
     Dates: start: 20190730, end: 20190730
  29. ACETAMINOPHEN [Concomitant]
     Active Substance: ACETAMINOPHEN
     Indication: Chemotherapy
     Dosage: 1 G/DAY, UNKNOWN FREQ.
     Route: 065
     Dates: start: 20190730, end: 20190730
  30. DEXAMETHASONE SODIUM PHOSPHATE [Concomitant]
     Active Substance: DEXAMETHASONE SODIUM PHOSPHATE
     Indication: Chemotherapy
     Dosage: 19.8 MG/DAY, UNKNOWN FREQ.
     Route: 065
     Dates: start: 20190730, end: 20190730
  31. POLARAMINE [Concomitant]
     Active Substance: DEXCHLORPHENIRAMINE MALEATE
     Indication: Chemotherapy
     Dosage: 1 A/DAY, UNKNOWN FREQ.
     Route: 065
     Dates: start: 20190730, end: 20190730
  32. ONDANSETRON [Concomitant]
     Active Substance: ONDANSETRON
     Indication: Chemotherapy
     Dosage: 1 V/DAY, UNKNOWN FREQ.
     Route: 065
     Dates: start: 20190730, end: 20190730
  33. CYTARABINE [Concomitant]
     Active Substance: CYTARABINE
     Indication: Plasma cell myeloma
     Dosage: UNK UNK, UNKNOWN FREQ.
     Route: 065
     Dates: start: 20190801
  34. ACLARUBICIN HYDROCHLORIDE [Concomitant]
     Active Substance: ACLARUBICIN HYDROCHLORIDE
     Indication: Plasma cell myeloma
     Dosage: UNK UNK, UNKNOWN FREQ.
     Route: 065
     Dates: start: 20190801

REACTIONS (7)
  - Epistaxis [Recovered/Resolved]
  - Disseminated intravascular coagulation [Recovered/Resolved]
  - Neutropenia [Recovered/Resolved]
  - Febrile neutropenia [Recovered/Resolved]
  - Hyperaesthesia [Recovered/Resolved]
  - Plasma cell myeloma [Fatal]
  - Drug interaction [Unknown]

NARRATIVE: CASE EVENT DATE: 20190628
